FAERS Safety Report 4981734-7 (Version None)
Quarter: 2006Q2

REPORT INFORMATION
  Report Type: 
  Country: None (occurrence: None)
  Receive Date: 20060420
  Receipt Date: 20060420
  Transmission Date: 20061013
  Serious: Yes (Hospitalization)
  Sender: FDA-Public Use
  Company Number: None

PATIENT
  Age: 84 Year
  Sex: Male
  Weight: 72.7 kg

DRUGS (2)
  1. CLOPIDOGREL [Suspect]
     Indication: CAROTID ENDARTERECTOMY
     Dosage: 75MG  QD  PO
     Route: 048
  2. ASPIRIN [Suspect]
     Indication: PROPHYLAXIS
     Dosage: 81MG  QD  PO    (DURATION: YEARS)
     Route: 048

REACTIONS (9)
  - DIVERTICULUM [None]
  - GASTRITIS [None]
  - HAEMATOCRIT DECREASED [None]
  - HAEMOGLOBIN DECREASED [None]
  - HAEMORRHOIDS [None]
  - MELAENA [None]
  - OCCULT BLOOD POSITIVE [None]
  - PEPTIC ULCER [None]
  - UPPER GASTROINTESTINAL HAEMORRHAGE [None]
